FAERS Safety Report 8415890-5 (Version None)
Quarter: 2012Q2

REPORT INFORMATION
  Report Type: 
  Country: None (occurrence: None)
  Receive Date: 20120606
  Receipt Date: 20120524
  Transmission Date: 20120825
  Serious: No
  Sender: FDA-Public Use
  Company Number: US-ASTRAZENECA-2012SE34045

PATIENT
  Age: 58 Year
  Sex: Female

DRUGS (3)
  1. NEXIUM [Suspect]
     Route: 048
  2. AMITRIPTYLINE HCL [Suspect]
     Route: 065
  3. PROZAC [Suspect]
     Route: 065

REACTIONS (2)
  - MEMORY IMPAIRMENT [None]
  - ACCIDENTAL EXPOSURE [None]
